FAERS Safety Report 18094720 (Version 5)
Quarter: 2020Q3

REPORT INFORMATION
  Report Type: Spontaneous
  Country: JP (occurrence: JP)
  Receive Date: 20200731
  Receipt Date: 20200928
  Transmission Date: 20201103
  Serious: Yes (Other)
  Sender: FDA-Public Use
  Company Number: JP-ROCHE-2651391

PATIENT
  Age: 70 Year
  Sex: Male

DRUGS (3)
  1. FLUMETHOLON [Concomitant]
     Active Substance: FLUOROMETHOLONE
     Indication: ULCERATIVE KERATITIS
     Dosage: 1 DROP
     Route: 047
  2. LUCENTIS [Suspect]
     Active Substance: RANIBIZUMAB
     Indication: DIABETIC RETINAL OEDEMA
     Dosage: LEFT EYE
     Route: 050
     Dates: start: 20200716, end: 20200716
  3. LUCENTIS [Suspect]
     Active Substance: RANIBIZUMAB
     Dosage: LEFT EYE
     Route: 050
     Dates: start: 20200824

REACTIONS (2)
  - Anterior chamber inflammation [Not Recovered/Not Resolved]
  - Corneal disorder [Not Recovered/Not Resolved]

NARRATIVE: CASE EVENT DATE: 20200717
